FAERS Safety Report 15622007 (Version 1)
Quarter: 2018Q4

REPORT INFORMATION
  Report Type: Spontaneous
  Country: US (occurrence: US)
  Receive Date: 20181109
  Receipt Date: 20181109
  Transmission Date: 20190205
  Serious: No
  Sender: FDA-Public Use
  Company Number: None

PATIENT
  Sex: Male

DRUGS (6)
  1. IRON [Concomitant]
     Active Substance: IRON
  2. CARAFATE [Concomitant]
     Active Substance: SUCRALFATE
  3. MAGNESIUM [Concomitant]
     Active Substance: MAGNESIUM
  4. METHAZOLAMIDE. [Concomitant]
     Active Substance: METHAZOLAMIDE
  5. COSENTYX [Suspect]
     Active Substance: SECUKINUMAB
     Indication: PSORIASIS
     Dosage: ?          OTHER FREQUENCY:EVERY 4 WEEKS;?
     Route: 058
     Dates: start: 2016
  6. MULTI-DAY VITAMIN [Concomitant]

REACTIONS (1)
  - Blindness [None]
